FAERS Safety Report 23544321 (Version 1)
Quarter: 2024Q1

REPORT INFORMATION
  Report Type: Report from Study
  Country: ZA (occurrence: ZA)
  Receive Date: 20240220
  Receipt Date: 20240220
  Transmission Date: 20240409
  Serious: Yes (Other)
  Sender: FDA-Public Use
  Company Number: ZA-002147023-NVSC2021ZA210346

PATIENT
  Age: 68 Year
  Sex: Female

DRUGS (2)
  1. BROLUCIZUMAB [Suspect]
     Active Substance: BROLUCIZUMAB
     Indication: Neovascular age-related macular degeneration
     Dosage: 27.6 MG, QMO, (OTHER DOSAGE 27.6MG IN 0.23ML)
     Route: 047
     Dates: start: 20210706
  2. BROLUCIZUMAB [Suspect]
     Active Substance: BROLUCIZUMAB
     Dosage: 27.6 MG, QMO, (OTHER DOSAGE 27.6MG IN 0.23ML)
     Route: 047
     Dates: start: 20210907

REACTIONS (2)
  - Intra-ocular injection complication [Recovering/Resolving]
  - Vitreous floaters [Recovering/Resolving]

NARRATIVE: CASE EVENT DATE: 20210910
